FAERS Safety Report 21793411 (Version 1)
Quarter: 2022Q4

REPORT INFORMATION
  Report Type: Spontaneous
  Country: ES (occurrence: ES)
  Receive Date: 20221229
  Receipt Date: 20221229
  Transmission Date: 20230112
  Serious: Yes (Other)
  Sender: FDA-Public Use
  Company Number: ES-SUN PHARMACEUTICAL INDUSTRIES LTD-2022R1-370965

PATIENT
  Age: 53 Year
  Sex: Male

DRUGS (3)
  1. OXCARBAZEPINE [Suspect]
     Active Substance: OXCARBAZEPINE
     Indication: Schizoaffective disorder
     Dosage: 600 MILLIGRAM
     Route: 065
  2. desvelafaxine [Concomitant]
     Indication: Schizoaffective disorder
     Dosage: 100 MILLIGRAM
     Route: 065
  3. PALIPERIDONE [Concomitant]
     Active Substance: PALIPERIDONE
     Indication: Schizoaffective disorder
     Dosage: 150 MILLIGRAM
     Route: 065

REACTIONS (1)
  - Hyponatraemia [Recovered/Resolved]
